FAERS Safety Report 8394112 (Version 2)
Quarter: 2013Q1

REPORT INFORMATION
  Report Type: Spontaneous
  Country: US (occurrence: US)
  Receive Date: 20120207
  Receipt Date: 20121218
  Transmission Date: 20140127
  Serious: Yes (Other)
  Sender: FDA-Public Use
  Company Number: PHEH2012US002982

PATIENT
  Age: 68 Year
  Sex: Female

DRUGS (2)
  1. ZOMETA (ZOLEDRONATE) UNKNOWN [Suspect]
     Dosage: 4 MG, UNK
     Dates: start: 200811
  2. STEROIDS NOS (NO INGREDIENTS/SUBSTANCES) [Concomitant]
     Dosage: 4 MG, UNK
     Dates: start: 200901

REACTIONS (1)
  - Osteonecrosis of jaw [Unknown]
